FAERS Safety Report 13260015 (Version 1)
Quarter: 2017Q1

REPORT INFORMATION
  Report Type: Spontaneous
  Country: US (occurrence: US)
  Receive Date: 20170222
  Receipt Date: 20170222
  Transmission Date: 20170428
  Serious: No
  Sender: FDA-Public Use
  Company Number: US-TEVA-653144USA

PATIENT
  Age: 31 Year
  Sex: Female

DRUGS (1)
  1. AMPHETAMINE W/DEXTROAMPHETAMINE [Suspect]
     Active Substance: AMPHETAMINE SULFATE\DEXTROAMPHETAMINE
     Indication: ATTENTION DEFICIT/HYPERACTIVITY DISORDER
     Dosage: 40 MILLIGRAM DAILY;
     Route: 065
     Dates: start: 20160411, end: 20160413

REACTIONS (6)
  - Feeling abnormal [Not Recovered/Not Resolved]
  - Diarrhoea [Recovering/Resolving]
  - Pollakiuria [Recovering/Resolving]
  - Confusional state [Recovering/Resolving]
  - Malaise [Recovering/Resolving]
  - Headache [Recovering/Resolving]

NARRATIVE: CASE EVENT DATE: 20160412
